FAERS Safety Report 17486985 (Version 3)
Quarter: 2020Q3

REPORT INFORMATION
  Report Type: Spontaneous
  Country: US (occurrence: US)
  Receive Date: 20200303
  Receipt Date: 20200811
  Transmission Date: 20201102
  Serious: Yes (Other)
  Sender: FDA-Public Use
  Company Number: US-SA-2020SA053529

PATIENT

DRUGS (1)
  1. DUPIXENT [Suspect]
     Active Substance: DUPILUMAB
     Indication: DERMATITIS ATOPIC
     Dosage: 300 MG, QOW
     Route: 058
     Dates: start: 20180913

REACTIONS (5)
  - Nasopharyngitis [Unknown]
  - Ulcer haemorrhage [Recovering/Resolving]
  - Cough [Unknown]
  - Laryngitis [Unknown]
  - Throat irritation [Unknown]
